FAERS Safety Report 26144516 (Version 1)
Quarter: 2025Q4

REPORT INFORMATION
  Report Type: Spontaneous
  Country: US (occurrence: US)
  Receive Date: 20251211
  Receipt Date: 20251211
  Transmission Date: 20260117
  Serious: Yes (Other)
  Sender: FRESENIUS MEDICAL CARE
  Company Number: US-FMCRTG-FMC-2512-001938

PATIENT
  Age: 70 Year
  Sex: Female
  Weight: 107 kg

DRUGS (3)
  1. DELFLEX WITH DEXTROSE 1.5% LOW MAGNESIUM LOW CALCIUM [Suspect]
     Active Substance: CALCIUM CHLORIDE\DEXTROSE\MAGNESIUM CHLORIDE\SODIUM CHLORIDE\SODIUM LACTATE
     Indication: End stage renal disease
     Dosage: EXCHANGES 4, FILL VOL 3000 ML, LAST FILL VOL 1500 ML CYC THERAPY VOL 13500 ML CYC THERAPY TIME 10 HR
     Route: 033
  2. DELFLEX WITH DEXTROSE 2.5% LOW MAGNESIUM LOW CALCIUM [Suspect]
     Active Substance: CALCIUM CHLORIDE\DEXTROSE\MAGNESIUM CHLORIDE\SODIUM CHLORIDE\SODIUM LACTATE
     Indication: End stage renal disease
     Dosage: EXCHANGES 4, FILL VOL 3000 ML, LAST FILL VOL 1500 ML CYC THERAPY VOL 13500 ML CYC THERAPY TIME 10 HR
     Route: 033
  3. DELFLEX WITH DEXTROSE 4.25% LOW MAGNESIUM LOW CALCIUM [Suspect]
     Active Substance: CALCIUM CHLORIDE\DEXTROSE\MAGNESIUM CHLORIDE\SODIUM CHLORIDE\SODIUM LACTATE
     Indication: End stage renal disease
     Dosage: EXCHANGES 4, FILL VOL 3000 ML, LAST FILL VOL 1500 ML CYC THERAPY VOL 13500 ML CYC THERAPY TIME 10 HR
     Route: 033

REACTIONS (1)
  - Peritonitis bacterial [Recovering/Resolving]

NARRATIVE: CASE EVENT DATE: 20251107
